FAERS Safety Report 24904623 (Version 1)
Quarter: 2025Q1

REPORT INFORMATION
  Report Type: Spontaneous
  Country: US (occurrence: US)
  Receive Date: 20250130
  Receipt Date: 20250130
  Transmission Date: 20250409
  Serious: No
  Sender: Tarsus Pharmaceuticals
  Company Number: US-TARSUS PHARMACEUTICALS-TSP-US-2024-000548

PATIENT
  Age: 89 Year
  Sex: Female

DRUGS (6)
  1. XDEMVY [Suspect]
     Active Substance: LOTILANER
     Indication: Product used for unknown indication
     Dosage: 1 DROP, BID
     Route: 047
     Dates: start: 20241107
  2. ALPRAZOLAM [Concomitant]
     Active Substance: ALPRAZOLAM
     Indication: Product used for unknown indication
     Route: 065
  3. EZETIMIBE [Concomitant]
     Active Substance: EZETIMIBE
     Indication: Product used for unknown indication
     Route: 065
  4. TRAMADOL [Concomitant]
     Active Substance: TRAMADOL
     Indication: Product used for unknown indication
     Route: 065
  5. ASPIRIN [Concomitant]
     Active Substance: ASPIRIN
     Indication: Product used for unknown indication
     Route: 065
  6. FLUOROMETHOLONE [Concomitant]
     Active Substance: FLUOROMETHOLONE
     Indication: Product used for unknown indication
     Route: 065

REACTIONS (7)
  - Eyelid margin crusting [Recovered/Resolved]
  - Eye irritation [Recovered/Resolved]
  - Eye swelling [Recovered/Resolved]
  - Periorbital swelling [Recovered/Resolved]
  - Conjunctivitis [Recovered/Resolved]
  - Eye infection [Recovered/Resolved]
  - Expired product administered [Unknown]

NARRATIVE: CASE EVENT DATE: 20241101
